FAERS Safety Report 20198568 (Version 2)
Quarter: 2022Q1

REPORT INFORMATION
  Report Type: Spontaneous
  Country: US (occurrence: US)
  Receive Date: 20211217
  Receipt Date: 20220117
  Transmission Date: 20220423
  Serious: No
  Sender: FDA-Public Use
  Company Number: US-AMGEN-USASP2021199766

PATIENT
  Age: 52 Year
  Sex: Male

DRUGS (2)
  1. CORLANOR [Suspect]
     Active Substance: IVABRADINE HYDROCHLORIDE
     Indication: Tachycardia
     Dosage: 5 MILLIGRAM, BID
     Route: 065
  2. CORLANOR [Suspect]
     Active Substance: IVABRADINE HYDROCHLORIDE
     Indication: Cardiac failure

REACTIONS (3)
  - Supraventricular tachycardia [Unknown]
  - Complication associated with device [Unknown]
  - Inappropriate schedule of product administration [Unknown]
